FAERS Safety Report 6995161-4 (Version None)
Quarter: 2010Q3

REPORT INFORMATION
  Report Type: 
  Country: None (occurrence: None)
  Receive Date: 20100915
  Receipt Date: 20100909
  Transmission Date: 20110219
  Serious: Yes (Hospitalization)
  Sender: FDA-Public Use
  Company Number: KV201000298

PATIENT
  Age: 46 Year
  Sex: Male

DRUGS (4)
  1. OXYCODONE HCL [Suspect]
     Indication: BACK PAIN
     Dosage: 35 TABLETS (350  MG), SINGLE, ORAL
     Route: 048
  2. OXYCONTIN [Suspect]
     Dosage: 5 TABLETS (400 MG), SINGLE, ORAL
     Route: 048
  3. DIAZEPAM [Concomitant]
  4. CARISOPRODOL [Concomitant]

REACTIONS (12)
  - AGITATION [None]
  - ATAXIA [None]
  - BRAIN OEDEMA [None]
  - CONFUSIONAL STATE [None]
  - DELIRIUM [None]
  - DISORIENTATION [None]
  - DYSARTHRIA [None]
  - GRAND MAL CONVULSION [None]
  - HYDROCEPHALUS [None]
  - INTENTIONAL OVERDOSE [None]
  - LEUKOENCEPHALOPATHY [None]
  - RESPIRATORY DEPRESSION [None]
